FAERS Safety Report 6190057-2 (Version None)
Quarter: 2009Q2

REPORT INFORMATION
  Report Type: 
  Country: None (occurrence: None)
  Receive Date: 20090514
  Receipt Date: 20090508
  Transmission Date: 20091009
  Serious: Yes (Other)
  Sender: FDA-Public Use
  Company Number: US-ABBOTT-09P-163-0572425-00

PATIENT
  Sex: Female
  Weight: 83.99 kg

DRUGS (1)
  1. SYNTHROID [Suspect]
     Indication: HYPOTHYROIDISM
     Dosage: 1 IN 1 DAY, VARYING DOSES
     Dates: start: 19940101

REACTIONS (9)
  - ARTHRITIS [None]
  - CATARACT [None]
  - DIVERTICULUM [None]
  - EYE DISORDER [None]
  - FATIGUE [None]
  - GLAUCOMA [None]
  - NASAL CONGESTION [None]
  - OROPHARYNGEAL PAIN [None]
  - REGURGITATION [None]
